FAERS Safety Report 18691619 (Version 1)
Quarter: 2021Q1

REPORT INFORMATION
  Report Type: Report from Study
  Country: None (occurrence: US)
  Receive Date: 20210101
  Receipt Date: 20210101
  Transmission Date: 20210419
  Serious: Yes (Other)
  Sender: FDA-Public Use
  Company Number: US-ABBVIE-20K-163-3708424-00

PATIENT
  Sex: Female

DRUGS (1)
  1. SYNTHROID [Suspect]
     Active Substance: LEVOTHYROXINE SODIUM
     Indication: PRODUCT USED FOR UNKNOWN INDICATION
     Route: 048

REACTIONS (7)
  - Anxiety [Unknown]
  - Alopecia [Unknown]
  - Goitre [Unknown]
  - Thyroid function test abnormal [Unknown]
  - Thyroid disorder [Unknown]
  - Fatigue [Unknown]
  - Thyroidectomy [Unknown]
